FAERS Safety Report 17455811 (Version 1)
Quarter: 2020Q1

REPORT INFORMATION
  Report Type: Spontaneous
  Country: BR (occurrence: BR)
  Receive Date: 20200225
  Receipt Date: 20200225
  Transmission Date: 20200409
  Serious: Yes (Hospitalization)
  Sender: FDA-Public Use
  Company Number: BR-SA-2020SA044636

PATIENT
  Age: 46 Year
  Sex: Female
  Weight: 65 kg

DRUGS (1)
  1. RIFALDIN [Suspect]
     Active Substance: RIFAMPIN
     Indication: HIDRADENITIS
     Dosage: 2 DF, BID

REACTIONS (3)
  - Burning sensation [Unknown]
  - Blood glucose increased [Recovering/Resolving]
  - Furuncle [Unknown]

NARRATIVE: CASE EVENT DATE: 2019
